FAERS Safety Report 19322280 (Version 1)
Quarter: 2021Q2

REPORT INFORMATION
  Report Type: Spontaneous
  Country: PK (occurrence: PK)
  Receive Date: 20210528
  Receipt Date: 20210528
  Transmission Date: 20210717
  Serious: Yes (Death)
  Sender: FDA-Public Use
  Company Number: PK-ROCHE-2837358

PATIENT
  Age: 72 Year
  Sex: Female

DRUGS (1)
  1. RISTOVA [Suspect]
     Active Substance: RITUXIMAB
     Indication: PEMPHIGUS
     Route: 042
     Dates: start: 20210330, end: 20210330

REACTIONS (1)
  - Death [Fatal]

NARRATIVE: CASE EVENT DATE: 20210419
